FAERS Safety Report 18384338 (Version 1)
Quarter: 2020Q4

REPORT INFORMATION
  Report Type: Spontaneous
  Country: GB (occurrence: GB)
  Receive Date: 20201014
  Receipt Date: 20201014
  Transmission Date: 20210114
  Serious: Yes (Other)
  Sender: FDA-Public Use
  Company Number: GB-FRESENIUS KABI-FK202010755

PATIENT

DRUGS (1)
  1. INDOMETHACIN (MANUFACTURER UNKNOWN) [Suspect]
     Active Substance: INDOMETHACIN
     Indication: CONGENITAL TRICUSPID VALVE INCOMPETENCE
     Route: 064

REACTIONS (2)
  - Oligohydramnios [Unknown]
  - Foetal exposure during pregnancy [Unknown]
